FAERS Safety Report 8792962 (Version 3)
Quarter: 2015Q3

REPORT INFORMATION
  Report Type: Report from Study
  Country: US (occurrence: US)
  Receive Date: 20120918
  Receipt Date: 20150731
  Transmission Date: 20151125
  Serious: Yes (Death)
  Sender: FDA-Public Use
  Company Number: US-ROCHE-1104213

PATIENT
  Sex: Male

DRUGS (9)
  1. ALOXI [Concomitant]
     Active Substance: PALONOSETRON HYDROCHLORIDE
     Route: 042
  2. ATROPINE. [Concomitant]
     Active Substance: ATROPINE
     Route: 042
  3. DECADRON [Concomitant]
     Active Substance: DEXAMETHASONE
     Route: 042
  4. IRINOTECAN [Concomitant]
     Active Substance: IRINOTECAN
     Route: 042
  5. AVASTIN [Suspect]
     Active Substance: BEVACIZUMAB
     Indication: BRAIN NEOPLASM MALIGNANT
     Route: 042
     Dates: start: 20080225
  6. AVASTIN [Suspect]
     Active Substance: BEVACIZUMAB
     Route: 042
  7. IRINOTECAN [Concomitant]
     Active Substance: IRINOTECAN
     Route: 042
  8. IRINOTECAN [Concomitant]
     Active Substance: IRINOTECAN
     Route: 042
  9. DIFLUCAN [Concomitant]
     Active Substance: FLUCONAZOLE
     Route: 065

REACTIONS (8)
  - Cough [Unknown]
  - Epistaxis [Unknown]
  - Oral pain [Unknown]
  - Off label use [Unknown]
  - Death [Fatal]
  - Febrile neutropenia [Unknown]
  - Eating disorder [Unknown]
  - Pseudomonal bacteraemia [Unknown]
